FAERS Safety Report 20887315 (Version 1)
Quarter: 2022Q2

REPORT INFORMATION
  Report Type: Report from Study
  Country: GB (occurrence: GB)
  Receive Date: 20220528
  Receipt Date: 20220528
  Transmission Date: 20220720
  Serious: Yes (Other)
  Sender: FDA-Public Use
  Company Number: GB-NOVARTISPH-NVSC2022GB122191

PATIENT
  Sex: Female

DRUGS (1)
  1. ERELZI [Suspect]
     Active Substance: ETANERCEPT-SZZS
     Indication: Rheumatoid arthritis
     Dosage: 50 MG, QW (4 PRE-FILLED DISPOSABLE INJECTIONS)
     Route: 058

REACTIONS (3)
  - Transient ischaemic attack [Unknown]
  - Sepsis [Unknown]
  - COVID-19 [Unknown]
